FAERS Safety Report 8136201-9 (Version None)
Quarter: 2012Q1

REPORT INFORMATION
  Report Type: 
  Country: None (occurrence: None)
  Receive Date: 20120210
  Receipt Date: 20120201
  Transmission Date: 20120608
  Serious: Yes (Hospitalization)
  Sender: FDA-Public Use
  Company Number: 2012SP006390

PATIENT
  Age: 49 Year
  Sex: Female

DRUGS (2)
  1. REBETOL [Suspect]
     Indication: HEPATITIS C
     Dosage: PO
     Route: 048
  2. INTRON A [Suspect]
     Indication: HEPATITIS C
     Dosage: IM
     Route: 030

REACTIONS (4)
  - COLITIS ISCHAEMIC [None]
  - ABDOMINAL TENDERNESS [None]
  - HAEMATOCHEZIA [None]
  - ABDOMINAL PAIN [None]
